FAERS Safety Report 9720867 (Version 1)
Quarter: 2013Q4

REPORT INFORMATION
  Report Type: Spontaneous
  Country: GB (occurrence: GB)
  Receive Date: 20131129
  Receipt Date: 20131129
  Transmission Date: 20140711
  Serious: Yes (Other)
  Sender: FDA-Public Use
  Company Number: GB-SA-2013SA120173

PATIENT
  Age: 24 Year
  Sex: Female
  Weight: 63.5 kg

DRUGS (1)
  1. TELFAST [Suspect]
     Indication: SEASONAL ALLERGY
     Route: 048

REACTIONS (4)
  - Bronchospasm [Recovered/Resolved]
  - Wheezing [Recovered/Resolved]
  - Cough [Recovered/Resolved]
  - Chest discomfort [Recovered/Resolved]
